FAERS Safety Report 5850100-4 (Version None)
Quarter: 2008Q3

REPORT INFORMATION
  Report Type: 
  Country: None (occurrence: None)
  Receive Date: 20080819
  Receipt Date: 20080819
  Transmission Date: 20090109
  Serious: Yes (Death)
  Sender: FDA-Public Use
  Company Number: US-BOEHRINGER INGELHEIM GMBH, GERMANY-2008-BP-13013RO

PATIENT
  Age: 54 Year
  Sex: Female

DRUGS (3)
  1. METHADONE HCL [Suspect]
  2. VALIUM [Concomitant]
  3. SEDATIVES [Concomitant]

REACTIONS (1)
  - DRUG TOXICITY [None]
